FAERS Safety Report 18063331 (Version 3)
Quarter: 2020Q3

REPORT INFORMATION
  Report Type: Report from Study
  Country: US (occurrence: US)
  Receive Date: 20200723
  Receipt Date: 20200814
  Transmission Date: 20201103
  Serious: No
  Sender: FDA-Public Use
  Company Number: NVSC2020US203219

PATIENT
  Sex: Male

DRUGS (2)
  1. OMNITROPE [Suspect]
     Active Substance: SOMATROPIN
     Indication: PRODUCT USED FOR UNKNOWN INDICATION
     Dosage: 2 MG, QD
     Route: 058
     Dates: start: 20200717
  2. OMNITROPE [Suspect]
     Active Substance: SOMATROPIN
     Dosage: 2 MG, BID
     Route: 058

REACTIONS (4)
  - Device leakage [Unknown]
  - Injection site swelling [Unknown]
  - Injection site erythema [Unknown]
  - Incorrect dose administered [Unknown]
